FAERS Safety Report 4289200-1 (Version None)
Quarter: 2004Q1

REPORT INFORMATION
  Report Type: 
  Country: None (occurrence: None)
  Receive Date: 20040115
  Receipt Date: 20031113
  Transmission Date: 20041129
  Serious: Yes (Death)
  Sender: FDA-Public Use
  Company Number: 203277

PATIENT
  Age: 45 Year
  Sex: Female

DRUGS (15)
  1. ACTIVASE [Suspect]
     Indication: MYOCARDIAL INFARCTION
     Dosage: INTRAVENOUS
     Route: 042
     Dates: start: 19990916
  2. METHOTREXATE [Concomitant]
  3. INSULIN [Concomitant]
  4. CALAN [Concomitant]
  5. PEPCID [Concomitant]
  6. PREMARIN [Concomitant]
  7. PROPULSID [Concomitant]
  8. RELAFEN [Concomitant]
  9. TYLENOL [Concomitant]
  10. PROVENTIL(ALBUTEROL,ALBUTEROL SULFATE) [Concomitant]
  11. MORPHINE [Concomitant]
  12. PHENERGAN [Concomitant]
  13. LOPRESSOR [Concomitant]
  14. HEPARIN [Concomitant]
  15. NITROGLYCERIN [Concomitant]

REACTIONS (2)
  - DRUG INEFFECTIVE [None]
  - MYOCARDIAL INFARCTION [None]
